FAERS Safety Report 12154375 (Version 1)
Quarter: 2016Q1

REPORT INFORMATION
  Report Type: Spontaneous
  Country: US (occurrence: US)
  Receive Date: 20160307
  Receipt Date: 20160307
  Transmission Date: 20160526
  Serious: No
  Sender: FDA-Public Use
  Company Number: US-PFIZER INC-2016111813

PATIENT
  Age: 72 Year
  Sex: Male

DRUGS (1)
  1. LYRICA [Suspect]
     Active Substance: PREGABALIN
     Indication: NEURALGIA
     Dosage: 50 MG, UNK
     Dates: start: 2016

REACTIONS (5)
  - Sleep disorder [Unknown]
  - Back pain [Unknown]
  - Pain [Unknown]
  - Condition aggravated [Unknown]
  - Ear disorder [Unknown]

NARRATIVE: CASE EVENT DATE: 2016
